FAERS Safety Report 6788587-5 (Version None)
Quarter: 2010Q2

REPORT INFORMATION
  Report Type: 
  Country: None (occurrence: None)
  Receive Date: 20100623
  Receipt Date: 20080403
  Transmission Date: 20101027
  Serious: No
  Sender: FDA-Public Use
  Company Number: US-PFIZER INC-2008029721

PATIENT
  Sex: Female
  Weight: 79.5 kg

DRUGS (3)
  1. PROCARDIA XL [Suspect]
     Indication: HYPERTENSION
     Dates: start: 20080321
  2. INSULIN [Concomitant]
  3. ZANTAC [Concomitant]

REACTIONS (10)
  - ASTHENIA [None]
  - COLD SWEAT [None]
  - FEELING COLD [None]
  - FLUID RETENTION [None]
  - FLUSHING [None]
  - HEADACHE [None]
  - HEART RATE INCREASED [None]
  - HYPERHIDROSIS [None]
  - JOINT SWELLING [None]
  - SYNCOPE [None]
